FAERS Safety Report 8618880-2 (Version None)
Quarter: 2012Q3

REPORT INFORMATION
  Report Type: 
  Country: None (occurrence: None)
  Receive Date: 20120824
  Receipt Date: 20120821
  Transmission Date: 20120928
  Serious: Yes (Other)
  Sender: FDA-Public Use
  Company Number: US-PFIZER INC-2012205680

PATIENT

DRUGS (1)
  1. FLECTOR [Suspect]

REACTIONS (1)
  - GASTROINTESTINAL HAEMORRHAGE [None]
